FAERS Safety Report 8548817-6 (Version None)
Quarter: 2012Q3

REPORT INFORMATION
  Report Type: 
  Country: None (occurrence: None)
  Receive Date: 20120730
  Receipt Date: 20120718
  Transmission Date: 20120928
  Serious: Yes (Other)
  Sender: FDA-Public Use
  Company Number: CA-BRISTOL-MYERS SQUIBB COMPANY-16674954

PATIENT
  Age: 26 Year
  Sex: Female

DRUGS (11)
  1. ORENCIA [Suspect]
     Indication: RHEUMATOID ARTHRITIS
     Dosage: LAST INFUSION ON 11-MAY-2012
     Route: 042
     Dates: start: 20120412
  2. INDOCIN [Concomitant]
  3. CALCIUM [Concomitant]
  4. METHOTREXATE [Suspect]
     Dosage: INJ
  5. VITAMIN D [Concomitant]
  6. OXYCODONE HCL [Concomitant]
  7. AMLODIPINE [Concomitant]
  8. FOLIC ACID [Concomitant]
  9. PREDNISONE [Concomitant]
  10. PLAQUENIL [Concomitant]
  11. OMEPRAZOLE [Concomitant]

REACTIONS (1)
  - ULCERATIVE KERATITIS [None]
